FAERS Safety Report 5322374-X (Version None)
Quarter: 2007Q2

REPORT INFORMATION
  Report Type: 
  Country: None (occurrence: None)
  Receive Date: 20070511
  Receipt Date: 20070504
  Transmission Date: 20071010
  Serious: Yes (Other)
  Sender: FDA-Public Use
  Company Number: US-ASTRAZENECA-2007UW09625

PATIENT
  Age: 48 Year
  Sex: Male

DRUGS (4)
  1. SEROQUEL [Suspect]
     Indication: DEPRESSION
     Dosage: STARTER PACK
     Route: 048
     Dates: start: 20070423
  2. SEROQUEL [Suspect]
     Dosage: IN 200+100 DOSES
     Route: 048
  3. SEROQUEL [Suspect]
     Route: 048
     Dates: start: 20070427, end: 20070430
  4. EFFEXOR [Suspect]

REACTIONS (6)
  - AGITATION [None]
  - ASTHENIA [None]
  - GENERAL SYMPTOM [None]
  - TACHYCARDIA [None]
  - TACHYPNOEA [None]
  - TREMOR [None]
